FAERS Safety Report 10246806 (Version 1)
Quarter: 2014Q2

REPORT INFORMATION
  Report Type: Spontaneous
  Country: US (occurrence: US)
  Receive Date: 20140619
  Receipt Date: 20140619
  Transmission Date: 20141212
  Serious: No
  Sender: FDA-Public Use
  Company Number: US-BAYER-2014-092014

PATIENT
  Age: 67 Year
  Sex: Female
  Weight: 113 kg

DRUGS (2)
  1. ALEVE CAPLET [Suspect]
     Indication: ANALGESIC THERAPY
     Dosage: 1 DF, QD
     Route: 048
     Dates: start: 201405
  2. IBUPROFEN [Concomitant]

REACTIONS (2)
  - Constipation [Recovered/Resolved]
  - Incorrect drug administration duration [None]
